FAERS Safety Report 4424449-6 (Version None)
Quarter: 2004Q3

REPORT INFORMATION
  Report Type: 
  Country: None (occurrence: None)
  Receive Date: 20040812
  Receipt Date: 20040805
  Transmission Date: 20050211
  Serious: Yes (Other)
  Sender: FDA-Public Use
  Company Number: PHEH2004US08464

PATIENT
  Age: 82 Year
  Sex: Male

DRUGS (9)
  1. EXELON [Suspect]
     Indication: DEMENTIA
     Dosage: 1.5 MG, QD
     Route: 048
     Dates: start: 20040716, end: 20040720
  2. EXELON [Suspect]
     Dosage: 1.5 MG, BID
     Route: 048
     Dates: start: 20040721, end: 20040804
  3. SEROQUEL [Suspect]
  4. HALDOL [Suspect]
  5. TRAZODONE [Suspect]
  6. ESTROGENS [Suspect]
     Indication: LIBIDO INCREASED
     Route: 062
  7. ATIVAN [Concomitant]
  8. FOLIC ACID [Concomitant]
  9. COMBIVENT [Concomitant]

REACTIONS (4)
  - BLOOD PRESSURE DECREASED [None]
  - CATATONIA [None]
  - DRUG INTERACTION [None]
  - HYPOKINESIA [None]
